FAERS Safety Report 12784329 (Version 1)
Quarter: 2016Q3

REPORT INFORMATION
  Report Type: Spontaneous
  Country: GB (occurrence: GB)
  Receive Date: 20160927
  Receipt Date: 20160927
  Transmission Date: 20161109
  Serious: Yes (Other)
  Sender: FDA-Public Use
  Company Number: GB-BEH-200812896

PATIENT
  Sex: Female

DRUGS (3)
  1. PARACETAMOL [Concomitant]
     Active Substance: ACETAMINOPHEN
     Indication: ANALGESIC THERAPY
     Dosage: DAILY DOSE QUANTITY: 1, DAILY DOSE UNIT: G
     Route: 042
  2. AUGMENTIN [Concomitant]
     Active Substance: AMOXICILLIN\CLAVULANATE POTASSIUM
     Indication: POSTOPERATIVE CARE
     Route: 042
  3. BERINERT [Suspect]
     Active Substance: HUMAN C1-ESTERASE INHIBITOR
     Indication: PREOPERATIVE CARE
     Dosage: DAILY DOSE QUANTITY: 500, DAILY DOSE UNIT: U
     Route: 042
     Dates: start: 20080211

REACTIONS (1)
  - Atrial fibrillation [Recovered/Resolved]

NARRATIVE: CASE EVENT DATE: 20080212
